FAERS Safety Report 21029567 (Version 15)
Quarter: 2023Q1

REPORT INFORMATION
  Report Type: Spontaneous
  Country: DE (occurrence: DE)
  Receive Date: 20220630
  Receipt Date: 20230106
  Transmission Date: 20230417
  Serious: Yes (Hospitalization, Other)
  Sender: FDA-Public Use
  Company Number: DE-BIOMARINAP-DE-2022-144011

PATIENT

DRUGS (4)
  1. NAGLAZYME [Suspect]
     Active Substance: GALSULFASE
     Indication: Mucopolysaccharidosis VI
     Dosage: 30 MILLIGRAM, QW
     Route: 042
     Dates: start: 2005
  2. CETIRIZINE HYDROCHLORIDE [Concomitant]
     Active Substance: CETIRIZINE HYDROCHLORIDE
     Indication: Premedication
     Dosage: 10 MILLIGRAM, QW
     Dates: start: 202204
  3. CORTISONE [Concomitant]
     Active Substance: CORTISONE
     Indication: Premedication
     Dosage: 20 MILLIGRAM
  4. DIMETHINDENE MALEATE [Concomitant]
     Active Substance: DIMETHINDENE MALEATE
     Indication: Premedication
     Dosage: 2 MILLIGRAM, SINGLE
     Route: 042

REACTIONS (19)
  - Spinal cord compression [Not Recovered/Not Resolved]
  - Hydrocephalus [Recovering/Resolving]
  - Paraesthesia [Not Recovered/Not Resolved]
  - Hypoaesthesia [Not Recovered/Not Resolved]
  - Panic attack [Recovering/Resolving]
  - Aphonia [Recovered/Resolved]
  - Stress [Not Recovered/Not Resolved]
  - Pain [Not Recovered/Not Resolved]
  - Asthenia [Unknown]
  - Diplopia [Not Recovered/Not Resolved]
  - Intra-abdominal fluid collection [Unknown]
  - Complication associated with device [Unknown]
  - Retching [Unknown]
  - Abdominal mass [Unknown]
  - Abdominal pain [Unknown]
  - Headache [Not Recovered/Not Resolved]
  - Arthralgia [Unknown]
  - Neck pain [Unknown]
  - Back pain [Unknown]

NARRATIVE: CASE EVENT DATE: 20220617
